FAERS Safety Report 9106945 (Version 2)
Quarter: 2013Q1

REPORT INFORMATION
  Report Type: Spontaneous
  Country: US (occurrence: US)
  Receive Date: 20130221
  Receipt Date: 20130318
  Transmission Date: 20140127
  Serious: Yes (Other)
  Sender: FDA-Public Use
  Company Number: US-ASTRAZENECA-2013SE10721

PATIENT
  Age: 62 Year
  Sex: Female

DRUGS (2)
  1. SYMBICORT PMDI [Suspect]
     Indication: ASTHMA
     Dosage: UNKNOWN FREQUENCY
     Route: 055
  2. ALBUTERAL [Suspect]
     Route: 065

REACTIONS (3)
  - Convulsion [Unknown]
  - Oropharyngeal pain [Unknown]
  - Drug dose omission [Unknown]
